FAERS Safety Report 4371041-8 (Version None)
Quarter: 2004Q2

REPORT INFORMATION
  Report Type: 
  Country: None (occurrence: None)
  Receive Date: 20040604
  Receipt Date: 20040421
  Transmission Date: 20050107
  Serious: No
  Sender: FDA-Public Use
  Company Number: US-MERCK-0404USA01910

PATIENT
  Age: 77 Year
  Sex: Male
  Weight: 71 kg

DRUGS (4)
  1. ZOCOR [Suspect]
     Indication: HYPERLIPIDAEMIA
     Route: 048
     Dates: start: 20021217, end: 20040330
  2. ZOCOR [Suspect]
     Route: 048
     Dates: start: 20000428, end: 20020101
  3. GLUCOPHAGE [Concomitant]
     Indication: DIABETES MELLITUS NON-INSULIN-DEPENDENT
     Route: 065
  4. GLUCOPHAGE [Concomitant]
     Route: 065
     Dates: start: 19960425

REACTIONS (10)
  - ANXIETY [None]
  - BALANCE DISORDER [None]
  - COGNITIVE DISORDER [None]
  - CORONARY ARTERY DISEASE [None]
  - DEPRESSION [None]
  - DIABETIC NEUROPATHY [None]
  - DIARRHOEA [None]
  - DRUG INEFFECTIVE [None]
  - OLIGURIA [None]
  - POLYNEUROPATHY [None]
